FAERS Safety Report 9896164 (Version 1)
Quarter: 2014Q1

REPORT INFORMATION
  Report Type: Spontaneous
  Country: US (occurrence: US)
  Receive Date: 20140213
  Receipt Date: 20140213
  Transmission Date: 20141002
  Serious: Yes (Hospitalization)
  Sender: FDA-Public Use
  Company Number: US-BRISTOL-MYERS SQUIBB COMPANY-17319583

PATIENT
  Age: 70 Year
  Sex: Female

DRUGS (1)
  1. ORENCIA [Suspect]
     Dosage: LAST INJ:25JAN13
     Route: 058

REACTIONS (2)
  - Adverse event [Unknown]
  - Hearing impaired [Unknown]
